FAERS Safety Report 8813972 (Version 1)
Quarter: 2012Q4

REPORT INFORMATION
  Report Type: 
  Country: JP (occurrence: JP)
  Receive Date: 20120928
  Receipt Date: 20120928
  Transmission Date: 20130627
  Serious: Yes (Life-Threatening, Hospitalization)
  Sender: FDA-Public Use
  Company Number: JP-ELI_LILLY_AND_COMPANY-JP201206008008

PATIENT
  Age: 67 Year
  Sex: Male
  Weight: 58.9 kg

DRUGS (4)
  1. ALIMTA [Suspect]
     Indication: LUNG ADENOCARCINOMA STAGE IV
     Dosage: 850 mg, UNK
     Route: 042
     Dates: start: 20120613, end: 20120613
  2. CARBOPLATIN [Concomitant]
     Indication: LUNG ADENOCARCINOMA STAGE IV
     Dosage: 550 mg, UNK
     Route: 042
     Dates: start: 20120613, end: 20120613
  3. FRESMIN S [Concomitant]
     Dosage: 1000 ug, qd
     Route: 030
     Dates: start: 20120525, end: 20120525
  4. PANVITAN [Concomitant]
     Dosage: 1000 mg, UNK
     Route: 048
     Dates: start: 20120525, end: 20120625

REACTIONS (2)
  - Tubulointerstitial nephritis [Recovered/Resolved with Sequelae]
  - Pyrexia [Recovering/Resolving]
